FAERS Safety Report 5482302-3 (Version None)
Quarter: 2007Q4

REPORT INFORMATION
  Report Type: 
  Country: None (occurrence: None)
  Receive Date: 20071011
  Receipt Date: 20071003
  Transmission Date: 20080405
  Serious: Yes (Hospitalization)
  Sender: FDA-Public Use
  Company Number: FR-WYE-H00488107

PATIENT
  Sex: Male

DRUGS (15)
  1. CORDARONE [Suspect]
     Dosage: 200 MG TABLET (DOSE UNSPECIFIED)
     Route: 048
  2. LEVOTHYROX [Suspect]
     Indication: HYPOTHYROIDISM
     Route: 048
  3. ZOCOR [Suspect]
     Dosage: UNKNOWN
     Route: 048
  4. GLUCOPHAGE [Concomitant]
     Dosage: UNKNOWN
     Route: 048
  5. PENICILLIN G [Concomitant]
  6. INSULATARD [Concomitant]
     Dosage: UNKNOWN
     Route: 058
  7. IKOREL [Concomitant]
     Dosage: UNKNOWN
     Route: 048
  8. ESOMEPRAZOLE [Concomitant]
     Dosage: UNKNOWN
     Route: 048
  9. TRIATEC [Concomitant]
     Dosage: UNKNOWN
     Route: 048
  10. TRINIPATCH [Concomitant]
     Dosage: UNKNOWN
     Route: 062
  11. LASIX [Concomitant]
     Dosage: UNKNOWN
     Route: 048
  12. PREVISCAN [Suspect]
     Indication: ARRHYTHMIA
     Route: 048
     Dates: start: 20030715, end: 20070717
  13. PREVISCAN [Suspect]
     Indication: ATRIAL FIBRILLATION
     Route: 048
     Dates: start: 20070717, end: 20070718
  14. PREVISCAN [Suspect]
     Indication: VENOUS THROMBOSIS
  15. ATARAX [Concomitant]
     Dosage: UNKNOWN
     Route: 048

REACTIONS (2)
  - INTERNATIONAL NORMALISED RATIO INCREASED [None]
  - WOUND HAEMORRHAGE [None]
